FAERS Safety Report 9214816 (Version 1)
Quarter: 2013Q2

REPORT INFORMATION
  Report Type: Report from Study
  Country: FR (occurrence: FR)
  Receive Date: 20130405
  Receipt Date: 20130405
  Transmission Date: 20140414
  Serious: Yes (Hospitalization, Other)
  Sender: FDA-Public Use
  Company Number: FR-BAYER-2013-037475

PATIENT
  Age: 75 Year
  Sex: Male
  Weight: 80 kg

DRUGS (4)
  1. REGORAFENIB [Suspect]
     Indication: COLORECTAL CANCER METASTATIC
     Dosage: DAILY DOSE 160 MG
     Route: 048
     Dates: start: 20130303, end: 20130318
  2. CELIPROLOL [Concomitant]
     Indication: HYPERTENSION
     Dosage: DAILY DOSE 200 MG
     Route: 048
  3. RAMIPRIL [Concomitant]
     Indication: HYPERTENSION
     Dosage: DAILY DOSE 1.2 DF
     Route: 048
  4. EZETROL [Concomitant]
     Indication: HYPERCHOLESTEROLAEMIA
     Dosage: DAILY DOSE 10 MG
     Route: 048

REACTIONS (3)
  - Asthenia [Recovering/Resolving]
  - Malnutrition [Recovering/Resolving]
  - Weight decreased [Recovering/Resolving]
